FAERS Safety Report 8392401-4 (Version None)
Quarter: 2012Q2

REPORT INFORMATION
  Report Type: 
  Country: None (occurrence: None)
  Receive Date: 20120529
  Receipt Date: 20120514
  Transmission Date: 20120825
  Serious: Yes (Life-Threatening, Hospitalization)
  Sender: FDA-Public Use
  Company Number: GB-WATSON-2012-08436

PATIENT
  Age: 63 Year
  Sex: Female

DRUGS (1)
  1. CODEINE-ACETAMINOPHEN (UNKNOWN) [Suspect]
     Indication: BACK PAIN
     Dosage: 500MG/30MG, 2 TABS Q 6 HR
     Route: 065

REACTIONS (3)
  - ENCEPHALOPATHY [None]
  - METABOLIC ACIDOSIS [None]
  - RENAL FAILURE [None]
